FAERS Safety Report 24795963 (Version 1)
Quarter: 2025Q1

REPORT INFORMATION
  Report Type: Spontaneous
  Country: FR (occurrence: FR)
  Receive Date: 20250101
  Receipt Date: 20250101
  Transmission Date: 20250409
  Serious: Yes (Hospitalization)
  Sender: NOVARTIS
  Company Number: None

PATIENT
  Age: 18 Year
  Sex: Male
  Weight: 66 kg

DRUGS (1)
  1. CARBAMAZEPINE [Suspect]
     Active Substance: CARBAMAZEPINE
     Indication: Toxicity to various agents
     Dosage: 30 G, QD
     Route: 048
     Dates: start: 20241016, end: 20241016

REACTIONS (9)
  - Toxicity to various agents [Recovered/Resolved]
  - Vomiting [Recovered/Resolved]
  - Altered state of consciousness [Recovered/Resolved]
  - Apnoea [Recovered/Resolved]
  - Agitation [Recovered/Resolved]
  - Oxygen saturation decreased [Recovered/Resolved]
  - Sinus tachycardia [Recovered/Resolved]
  - Electrocardiogram T wave inversion [Recovered/Resolved]
  - Dizziness [Recovered/Resolved]

NARRATIVE: CASE EVENT DATE: 20241016
